FAERS Safety Report 17006635 (Version 1)
Quarter: 2019Q4

REPORT INFORMATION
  Report Type: Spontaneous
  Country: US (occurrence: US)
  Receive Date: 20190927
  Receipt Date: 20190927
  Transmission Date: 20200122
  Serious: Yes (Life-Threatening)
  Sender: FDA-Public Use
  Company Number: None

PATIENT
  Age: 64 Year
  Sex: Male
  Weight: 90.72 kg

DRUGS (1)
  1. VAPING FROM HEALING CORNER [Suspect]
     Active Substance: DEVICE\HERBALS

REACTIONS (3)
  - Bronchitis [None]
  - Dyspnoea [None]
  - Nocturnal dyspnoea [None]

NARRATIVE: CASE EVENT DATE: 20160314
